FAERS Safety Report 11053430 (Version 3)
Quarter: 2015Q3

REPORT INFORMATION
  Report Type: Report from Study
  Country: DE (occurrence: DE)
  Receive Date: 20150421
  Receipt Date: 20150730
  Transmission Date: 20151125
  Serious: Yes (Death)
  Sender: FDA-Public Use
  Company Number: DE-ABBVIE-15P-062-1378770-00

PATIENT
  Age: 78 Year
  Sex: Male

DRUGS (1)
  1. DUODOPA [Suspect]
     Active Substance: CARBIDOPA\LEVODOPA
     Indication: PARKINSON^S DISEASE
     Dosage: MD 15.6ML, CRD 5.4ML/H, ED 2.0ML
     Route: 050
     Dates: start: 20120511

REACTIONS (3)
  - Fall [Fatal]
  - Weight decreased [Unknown]
  - Dysphagia [Unknown]

NARRATIVE: CASE EVENT DATE: 20150418
